FAERS Safety Report 19665767 (Version 1)
Quarter: 2021Q3

REPORT INFORMATION
  Report Type: Spontaneous
  Country: US (occurrence: US)
  Receive Date: 20210806
  Receipt Date: 20210806
  Transmission Date: 20211014
  Serious: Yes (Other)
  Sender: FDA-Public Use
  Company Number: US-ACCORD-210393

PATIENT
  Age: 48 Year
  Sex: Female
  Weight: 81.65 kg

DRUGS (13)
  1. DOCETAXEL ACCORD [Suspect]
     Active Substance: DOCETAXEL
     Indication: BREAST CANCER
     Dates: start: 20150423, end: 20150716
  2. PERTUZUMAB. [Suspect]
     Active Substance: PERTUZUMAB
     Indication: BREAST CANCER
     Dates: start: 20150423, end: 20150716
  3. RESTORIL [Concomitant]
     Active Substance: TEMAZEPAM
  4. TYLENOL EXTRA STRENGTH [Concomitant]
     Active Substance: ACETAMINOPHEN
  5. TYLENOL [Concomitant]
     Active Substance: ACETAMINOPHEN
     Dates: start: 2001, end: 2017
  6. FOLIC ACID. [Concomitant]
     Active Substance: FOLIC ACID
  7. DILAUDID [Concomitant]
     Active Substance: HYDROMORPHONE HYDROCHLORIDE
  8. ADVIL [Concomitant]
     Active Substance: IBUPROFEN
  9. POTASSIUM [Concomitant]
     Active Substance: POTASSIUM
  10. PARAPLATIN [Suspect]
     Active Substance: CARBOPLATIN
     Indication: BREAST CANCER
     Dates: start: 20150423, end: 20150716
  11. HERCEPTIN [Suspect]
     Active Substance: TRASTUZUMAB
     Indication: BREAST CANCER
     Dates: start: 20150423, end: 20150716
  12. ATIVAN [Concomitant]
     Active Substance: LORAZEPAM
  13. IMODIUM A?D [Concomitant]
     Active Substance: LOPERAMIDE HYDROCHLORIDE

REACTIONS (1)
  - Alopecia [Not Recovered/Not Resolved]

NARRATIVE: CASE EVENT DATE: 20150510
